FAERS Safety Report 9165975 (Version 1)
Quarter: 2013Q1

REPORT INFORMATION
  Report Type: Spontaneous
  Country: BR (occurrence: BR)
  Receive Date: 20130315
  Receipt Date: 20130315
  Transmission Date: 20140127
  Serious: Yes (Hospitalization)
  Sender: FDA-Public Use
  Company Number: BR-GLAXOSMITHKLINE-A1015513A

PATIENT
  Sex: Male
  Weight: 52 kg

DRUGS (4)
  1. AVODART [Suspect]
     Indication: PROSTATIC DISORDER
     Dosage: .5MG AT NIGHT
     Route: 065
     Dates: start: 2010
  2. SECOTEX [Suspect]
     Indication: PRODUCT USED FOR UNKNOWN INDICATION
     Route: 048
     Dates: start: 2010
  3. SIFROL [Concomitant]
  4. PROLOPA [Concomitant]

REACTIONS (3)
  - Urinary tract infection [Recovered/Resolved]
  - Pneumonia [Recovered/Resolved]
  - Nosocomial infection [Not Recovered/Not Resolved]
